FAERS Safety Report 17238855 (Version 1)
Quarter: 2019Q4

REPORT INFORMATION
  Report Type: Spontaneous
  Country: US (occurrence: US)
  Receive Date: 20191211
  Receipt Date: 20191211
  Transmission Date: 20200122
  Serious: Yes (Hospitalization)
  Sender: FDA-Public Use
  Company Number: None

PATIENT
  Age: 67 Year
  Sex: Female

DRUGS (2)
  1. SILDENAFIL 20MG TAB MG [Suspect]
     Active Substance: SILDENAFIL
     Indication: PULMONARY HYPERTENSION
     Route: 048
     Dates: start: 20190429
  2. OPSUMIT [Concomitant]
     Active Substance: MACITENTAN

REACTIONS (2)
  - Knee arthroplasty [None]
  - Therapy cessation [None]

NARRATIVE: CASE EVENT DATE: 20191111
